FAERS Safety Report 25698087 (Version 1)
Quarter: 2025Q3

REPORT INFORMATION
  Report Type: Spontaneous
  Country: US (occurrence: US)
  Receive Date: 20250819
  Receipt Date: 20250819
  Transmission Date: 20251020
  Serious: Yes (Hospitalization, Other)
  Sender: ORGANON
  Company Number: US-MLMSERVICE-20160201-0152775-1

PATIENT
  Age: 78 Year
  Sex: Male

DRUGS (5)
  1. ZOCOR [Interacting]
     Active Substance: SIMVASTATIN
     Route: 048
  2. ESOMEPRAZOLE MAGNESIUM [Interacting]
     Active Substance: ESOMEPRAZOLE MAGNESIUM
     Route: 048
  3. CAPECITABINE [Interacting]
     Active Substance: CAPECITABINE
     Indication: Squamous cell carcinoma
     Dosage: ON ALTERNATE WEEKS
     Route: 048
  4. PAROXETINE [Interacting]
     Active Substance: PAROXETINE
  5. ACYCLOVIR [Concomitant]
     Active Substance: ACYCLOVIR

REACTIONS (3)
  - Meningitis cryptococcal [Not Recovered/Not Resolved]
  - Drug interaction [Unknown]
  - Off label use [Unknown]
